FAERS Safety Report 5991209-4 (Version None)
Quarter: 2008Q4

REPORT INFORMATION
  Report Type: 
  Country: None (occurrence: None)
  Receive Date: 20081211
  Receipt Date: 20081203
  Transmission Date: 20090506
  Serious: Yes (Other)
  Sender: FDA-Public Use
  Company Number: US-ELI_LILLY_AND_COMPANY-US200812001832

PATIENT
  Sex: Male

DRUGS (6)
  1. HUMALOG [Suspect]
     Dates: start: 19980101
  2. NORVASC [Concomitant]
     Indication: HYPERTENSION
  3. DIOVAN [Concomitant]
     Indication: HYPERTENSION
  4. ZOCOR [Concomitant]
     Indication: BLOOD CHOLESTEROL INCREASED
  5. PLETAL [Concomitant]
     Indication: PROMOTION OF PERIPHERAL CIRCULATION
  6. ASPIRIN [Concomitant]
     Dates: start: 19880101

REACTIONS (2)
  - BLINDNESS UNILATERAL [None]
  - VISUAL ACUITY REDUCED [None]
